FAERS Safety Report 5375597-8 (Version None)
Quarter: 2007Q2

REPORT INFORMATION
  Report Type: 
  Country: None (occurrence: None)
  Receive Date: 20070629
  Receipt Date: 20070618
  Transmission Date: 20071010
  Serious: Yes (Disabling, Other)
  Sender: FDA-Public Use
  Company Number: BR-PFIZER INC-2007051716

PATIENT
  Sex: Male
  Weight: 80 kg

DRUGS (2)
  1. LIPITOR [Suspect]
     Indication: BLOOD CHOLESTEROL INCREASED
     Dosage: FREQ:DAILY
     Route: 048
     Dates: start: 20070101, end: 20070101
  2. DRUG, UNSPECIFIED [Concomitant]

REACTIONS (5)
  - CHROMATURIA [None]
  - HEPATOTOXICITY [None]
  - MYALGIA [None]
  - PYREXIA [None]
  - VOMITING [None]
